FAERS Safety Report 9847870 (Version 33)
Quarter: 2020Q3

REPORT INFORMATION
  Report Type: Spontaneous
  Country: CA (occurrence: CA)
  Receive Date: 20140128
  Receipt Date: 20200914
  Transmission Date: 20201103
  Serious: Yes (Hospitalization, Disabling, Other)
  Sender: FDA-Public Use
  Company Number: CA-ROCHE-1339789

PATIENT
  Age: 43 Year
  Sex: Female

DRUGS (24)
  1. XOLAIR [Suspect]
     Active Substance: OMALIZUMAB
     Dosage: 225 MG, EVERY 4 WEEKS
     Route: 058
  2. XOLAIR [Suspect]
     Active Substance: OMALIZUMAB
     Dosage: UNK
     Route: 058
     Dates: start: 20170726
  3. XOLAIR [Suspect]
     Active Substance: OMALIZUMAB
     Dosage: 225 MG, BIW
     Route: 058
     Dates: start: 20190409
  4. XOLAIR [Suspect]
     Active Substance: OMALIZUMAB
     Dosage: 225 MG, BIW
     Route: 058
     Dates: start: 20200128
  5. PREDNISONE. [Suspect]
     Active Substance: PREDNISONE
     Indication: ASTHMA
     Route: 065
  6. PREDNISONE. [Suspect]
     Active Substance: PREDNISONE
     Indication: CHEST DISCOMFORT
  7. XOLAIR [Suspect]
     Active Substance: OMALIZUMAB
     Dosage: UNK
     Route: 058
     Dates: start: 20160518
  8. XOLAIR [Suspect]
     Active Substance: OMALIZUMAB
     Route: 058
     Dates: start: 20200211
  9. PREDNISONE. [Suspect]
     Active Substance: PREDNISONE
     Indication: DYSPNOEA
  10. SINGULAIR [Concomitant]
     Active Substance: MONTELUKAST SODIUM
     Indication: PRODUCT USED FOR UNKNOWN INDICATION
  11. XOLAIR [Suspect]
     Active Substance: OMALIZUMAB
     Dosage: 225 MG, BIW
     Route: 058
  12. XOLAIR [Suspect]
     Active Substance: OMALIZUMAB
     Route: 058
     Dates: start: 20190903
  13. XOLAIR [Suspect]
     Active Substance: OMALIZUMAB
     Dosage: UNK
     Route: 058
     Dates: start: 20160223
  14. XOLAIR [Suspect]
     Active Substance: OMALIZUMAB
     Dosage: 225 MG, BIW
     Route: 058
     Dates: start: 20180912
  15. XOLAIR [Suspect]
     Active Substance: OMALIZUMAB
     Dosage: 225 MG, BIW
     Route: 058
     Dates: start: 20190311
  16. XOLAIR [Suspect]
     Active Substance: OMALIZUMAB
     Route: 058
  17. PREDNISONE. [Suspect]
     Active Substance: PREDNISONE
     Indication: COUGH
  18. PREDNISONE. [Suspect]
     Active Substance: PREDNISONE
     Indication: RESPIRATORY DISORDER
  19. XOLAIR [Suspect]
     Active Substance: OMALIZUMAB
     Dosage: UNK
     Route: 058
     Dates: start: 20170707
  20. XOLAIR [Suspect]
     Active Substance: OMALIZUMAB
     Dosage: 225 MG, BIW
     Route: 058
     Dates: start: 20170912
  21. XOLAIR [Suspect]
     Active Substance: OMALIZUMAB
     Indication: ASTHMA
     Dosage: 225 MG, BIW
     Route: 058
     Dates: start: 20140109
  22. XOLAIR [Suspect]
     Active Substance: OMALIZUMAB
     Dosage: 225 MG, BIW
     Route: 058
     Dates: start: 20190211
  23. XOLAIR [Suspect]
     Active Substance: OMALIZUMAB
     Dosage: UNK
     Route: 058
     Dates: start: 201708
  24. PREDNISONE. [Suspect]
     Active Substance: PREDNISONE
     Indication: LUNG DISORDER

REACTIONS (34)
  - Dizziness [Unknown]
  - Oropharyngeal pain [Unknown]
  - Alopecia [Not Recovered/Not Resolved]
  - Myalgia [Unknown]
  - Pain [Unknown]
  - Seasonal allergy [Unknown]
  - Night sweats [Unknown]
  - Dysphonia [Unknown]
  - Weight decreased [Unknown]
  - Upper limb fracture [Unknown]
  - Mental disorder [Unknown]
  - Dyspnoea exertional [Unknown]
  - Fatigue [Unknown]
  - Chest discomfort [Unknown]
  - Obstructive airways disorder [Unknown]
  - Nausea [Unknown]
  - Asthma [Recovering/Resolving]
  - Anxiety [Unknown]
  - Poor quality sleep [Unknown]
  - Illness [Unknown]
  - Hypersomnia [Unknown]
  - Wheezing [Recovering/Resolving]
  - Mobility decreased [Unknown]
  - Depression [Unknown]
  - Sensitivity to weather change [Unknown]
  - Forced expiratory volume decreased [Recovering/Resolving]
  - Feeling abnormal [Unknown]
  - Fall [Unknown]
  - Arthralgia [Unknown]
  - Tremor [Unknown]
  - Somnolence [Unknown]
  - Respiratory disorder [Unknown]
  - Loss of consciousness [Unknown]
  - Dyspnoea [Unknown]

NARRATIVE: CASE EVENT DATE: 20140115
